FAERS Safety Report 4679560-1 (Version None)
Quarter: 2005Q2

REPORT INFORMATION
  Report Type: 
  Country: None (occurrence: None)
  Receive Date: 20050602
  Receipt Date: 20050526
  Transmission Date: 20051028
  Serious: Yes (Death, Hospitalization)
  Sender: FDA-Public Use
  Company Number: 200514573US

PATIENT
  Age: 64 Year
  Sex: Female

DRUGS (7)
  1. LOVENOX [Suspect]
     Indication: DEEP VEIN THROMBOSIS
     Route: 058
     Dates: start: 20050415
  2. WARFARIN SODIUM [Concomitant]
     Dosage: DOSE: UNK
     Dates: end: 20050415
  3. LASIX [Concomitant]
  4. GLYBURIDE [Concomitant]
  5. TRIAMCINOLONE CREAM [Concomitant]
     Dosage: DOSE: UNK
  6. LISINOPRIL [Concomitant]
  7. ACTOS [Concomitant]

REACTIONS (11)
  - ACTIVATED PARTIAL THROMBOPLASTIN TIME PROLONGED [None]
  - BLOOD UREA INCREASED [None]
  - DEATH [None]
  - HAEMATOMA [None]
  - HAEMOGLOBIN DECREASED [None]
  - HAEMORRHAGE [None]
  - INTERNATIONAL NORMALISED RATIO DECREASED [None]
  - LUNG NEOPLASM [None]
  - PLEURAL EFFUSION [None]
  - PROTHROMBIN TIME PROLONGED [None]
  - SOMNOLENCE [None]
